FAERS Safety Report 23895575 (Version 1)
Quarter: 2024Q2

REPORT INFORMATION
  Report Type: Spontaneous
  Country: JP (occurrence: JP)
  Receive Date: 20240524
  Receipt Date: 20240524
  Transmission Date: 20240717
  Serious: Yes (Other)
  Sender: FDA-Public Use
  Company Number: JP-ARGENX-2023-ARGX-JP001836

PATIENT

DRUGS (11)
  1. VYVGART [Suspect]
     Active Substance: EFGARTIGIMOD ALFA-FCAB
     Indication: Myasthenia gravis
     Dosage: UNK
     Route: 042
     Dates: start: 20230207
  2. EFGARTIGIMOD ALFA\HYALURONIDASE-QVFC [Suspect]
     Active Substance: EFGARTIGIMOD ALFA\HYALURONIDASE-QVFC
     Indication: Myasthenia gravis
     Dosage: 5.6 ML
     Route: 058
     Dates: start: 20240514
  3. LINAGLIPTIN [Concomitant]
     Active Substance: LINAGLIPTIN
     Dosage: UNK
     Route: 065
  4. VONOPRAZAN FUMARATE [Concomitant]
     Active Substance: VONOPRAZAN FUMARATE
     Dosage: UNK
     Route: 065
  5. SULFAMETHOXAZOLE\TRIMETHOPRIM [Concomitant]
     Active Substance: SULFAMETHOXAZOLE\TRIMETHOPRIM
     Dosage: UNK
     Route: 065
  6. CYCLOSPORINE [Concomitant]
     Active Substance: CYCLOSPORINE
     Dosage: UNK
     Route: 065
  7. MYTELASE [Concomitant]
     Active Substance: AMBENONIUM CHLORIDE
     Dosage: UNK
     Route: 065
  8. SHAKUYAKUKANZOTO [Concomitant]
     Active Substance: HERBALS
     Dosage: UNK
     Route: 065
  9. DOMPERIDONE [Concomitant]
     Active Substance: DOMPERIDONE
     Dosage: UNK
     Route: 065
  10. PREDNISOLONE [Concomitant]
     Active Substance: PREDNISOLONE
     Dosage: UNK
     Route: 065
  11. CILNIDIPINE [Concomitant]
     Active Substance: CILNIDIPINE
     Dosage: UNK
     Route: 065

REACTIONS (6)
  - Rib fracture [Not Recovered/Not Resolved]
  - Muscular weakness [Recovered/Resolved]
  - Asthenia [Unknown]
  - Injection site pain [Unknown]
  - Glossodynia [Unknown]
  - Oedema [Unknown]

NARRATIVE: CASE EVENT DATE: 20230501
